FAERS Safety Report 6091379-6 (Version None)
Quarter: 2009Q1

REPORT INFORMATION
  Report Type: 
  Country: None (occurrence: None)
  Receive Date: 20090225
  Receipt Date: 20081104
  Transmission Date: 20090719
  Serious: No
  Sender: FDA-Public Use
  Company Number: A0754806A

PATIENT
  Age: 68 Year
  Sex: Male

DRUGS (9)
  1. VERAMYST [Suspect]
     Indication: MULTIPLE ALLERGIES
     Dosage: 4SPR PER DAY
     Route: 045
     Dates: start: 20080929
  2. PRILOSEC [Concomitant]
  3. CHOLESTYRAMINE [Concomitant]
  4. PLAVIX [Concomitant]
  5. DIAVAN [Concomitant]
  6. SIMVASTATIN [Concomitant]
  7. ASPIRIN [Concomitant]
  8. LOVAZA [Concomitant]
  9. SINGULAIR [Concomitant]

REACTIONS (1)
  - DYSGEUSIA [None]
